FAERS Safety Report 14370420 (Version 1)
Quarter: 2018Q1

REPORT INFORMATION
  Report Type: Report from Study
  Country: None (occurrence: BR)
  Receive Date: 20180110
  Receipt Date: 20180110
  Transmission Date: 20180509
  Serious: Yes (Other)
  Sender: FDA-Public Use
  Company Number: BR-ABBVIE-18K-020-2213022-00

PATIENT
  Age: 63 Year
  Sex: Female
  Weight: 75 kg

DRUGS (2)
  1. HUMIRA [Suspect]
     Active Substance: ADALIMUMAB
     Indication: PSORIATIC ARTHROPATHY
     Route: 058
     Dates: start: 20161124
  2. NIMESULIDE [Concomitant]
     Active Substance: NIMESULIDE
     Indication: PAIN

REACTIONS (7)
  - Joint effusion [Not Recovered/Not Resolved]
  - Post procedural infection [Not Recovered/Not Resolved]
  - Meniscus injury [Not Recovered/Not Resolved]
  - Procedural pain [Not Recovered/Not Resolved]
  - Joint swelling [Not Recovered/Not Resolved]
  - Post procedural complication [Not Recovered/Not Resolved]
  - Gait inability [Not Recovered/Not Resolved]

NARRATIVE: CASE EVENT DATE: 201710
